FAERS Safety Report 9688962 (Version 1)
Quarter: 2013Q4

REPORT INFORMATION
  Report Type: Spontaneous
  Country: PE (occurrence: PE)
  Receive Date: 20131114
  Receipt Date: 20131114
  Transmission Date: 20140711
  Serious: Yes (Death)
  Sender: FDA-Public Use
  Company Number: PE-GLAXOSMITHKLINE-A1049525A

PATIENT
  Age: 81 Year
  Sex: Female

DRUGS (1)
  1. SERETIDE [Suspect]
     Indication: PULMONARY FIBROSIS
     Dosage: 4PUFF PER DAY
     Route: 065
     Dates: start: 20121128

REACTIONS (1)
  - Death [Fatal]
